FAERS Safety Report 19720699 (Version 3)
Quarter: 2021Q4

REPORT INFORMATION
  Report Type: Spontaneous
  Country: FR (occurrence: FR)
  Receive Date: 20210819
  Receipt Date: 20211018
  Transmission Date: 20220303
  Serious: Yes (Other)
  Sender: FDA-Public Use
  Company Number: FR-VIFOR PHARMA-VIT-2021-06715

PATIENT
  Age: 73 Year
  Sex: Female
  Weight: 59.5 kg

DRUGS (15)
  1. VELPHORO [Suspect]
     Active Substance: SUCROFERRIC OXYHYDROXIDE
     Indication: Hyperphosphataemia
     Route: 048
     Dates: start: 20201020, end: 20201215
  2. VELPHORO [Suspect]
     Active Substance: SUCROFERRIC OXYHYDROXIDE
     Route: 048
     Dates: start: 20201215, end: 20210817
  3. VENOFER [Suspect]
     Active Substance: IRON SUCROSE
     Indication: Product used for unknown indication
     Route: 042
     Dates: start: 20200306, end: 20201020
  4. VENOFER [Suspect]
     Active Substance: IRON SUCROSE
     Route: 042
     Dates: start: 20201029, end: 20201117
  5. VENOFER [Suspect]
     Active Substance: IRON SUCROSE
     Route: 042
     Dates: start: 20210708, end: 20210723
  6. VENOFER [Suspect]
     Active Substance: IRON SUCROSE
     Route: 042
     Dates: end: 20210907
  7. VENOFER [Suspect]
     Active Substance: IRON SUCROSE
     Route: 040
     Dates: start: 20210907
  8. ARANESP [Suspect]
     Active Substance: DARBEPOETIN ALFA
     Indication: Product used for unknown indication
     Dosage: VARYING (WEEKLY)
     Dates: start: 20200320, end: 20210907
  9. LOVENOX [Concomitant]
     Active Substance: ENOXAPARIN SODIUM
     Dosage: 0.4 ML
     Dates: start: 20210921
  10. FUROSEMIDE [Concomitant]
     Active Substance: FUROSEMIDE
     Dosage: IN THE MORNING. 500 MG ON DAYS WITHOUT DIALYSIS AND 1/4 (125) MG ON DIALYSIS DAYS
     Route: 048
     Dates: start: 20210817
  11. FOLIC ACID [Concomitant]
     Active Substance: FOLIC ACID
     Route: 048
     Dates: start: 20210608
  12. CHOLECALCIFEROL [Concomitant]
     Active Substance: CHOLECALCIFEROL
     Dosage: 2 ML ORAL DRINKABLE SOLUTION 1 BOTTLE
     Route: 048
     Dates: start: 20201215
  13. IMODIUM [Concomitant]
     Active Substance: LOPERAMIDE HYDROCHLORIDE
     Dosage: 1 CAPSULE PER DAY IF NECESSARY (MAX 1 CAPSULE X3 / DAY)
     Route: 048
     Dates: start: 20200721
  14. EMLA [Concomitant]
     Active Substance: LIDOCAINE\PRILOCAINE
     Dosage: 5% CUTANEOUS SKIN PATCHES B/20: MEDICAL PATCHES CUTANEOUS ROUTE 2 PADS TUE TH SA TO BE PUT BEFORE DI
     Dates: start: 20200310
  15. TAHOR [Concomitant]
     Active Substance: ATORVASTATIN CALCIUM
     Route: 048
     Dates: start: 20200306

REACTIONS (2)
  - Intestinal ulcer [Unknown]
  - Biopsy colon abnormal [Unknown]

NARRATIVE: CASE EVENT DATE: 20210621
